FAERS Safety Report 14037492 (Version 1)
Quarter: 2017Q4

REPORT INFORMATION
  Report Type: Spontaneous
  Country: US (occurrence: US)
  Receive Date: 20171004
  Receipt Date: 20171004
  Transmission Date: 20180321
  Serious: No
  Sender: FDA-Public Use
  Company Number: US-UNICHEM LABORATORIES LIMITED-UCM201610-000244

PATIENT
  Sex: Female

DRUGS (2)
  1. BYSTOLIC [Concomitant]
     Active Substance: NEBIVOLOL HYDROCHLORIDE
  2. CLONIDINE HCL [Suspect]
     Active Substance: CLONIDINE HYDROCHLORIDE
     Indication: HYPERTENSION

REACTIONS (4)
  - Dizziness [Unknown]
  - Chills [Unknown]
  - Syncope [Unknown]
  - Drug ineffective [Unknown]
